FAERS Safety Report 6165216-5 (Version None)
Quarter: 2009Q2

REPORT INFORMATION
  Report Type: 
  Country: None (occurrence: None)
  Receive Date: 20090423
  Receipt Date: 20090423
  Transmission Date: 20091009
  Serious: Yes (Hospitalization)
  Sender: FDA-Public Use
  Company Number: BE-PFIZER INC-2008100969

PATIENT

DRUGS (11)
  1. VORICONAZOLE [Suspect]
     Indication: ASPERGILLOSIS
     Dosage: 4 MG/KG, UNK
     Route: 042
     Dates: start: 20081013, end: 20081021
  2. VORICONAZOLE [Suspect]
     Dosage: 400 MG/DAY
     Route: 042
     Dates: start: 20081020, end: 20081107
  3. VORICONAZOLE [Suspect]
     Dosage: 200 MG, 2X/DAY
     Route: 048
     Dates: start: 20081107, end: 20081120
  4. BLINDED *PLACEBO [Suspect]
     Indication: SYSTEMIC CANDIDA
     Dosage: 100 MG, 1X/DAY
     Route: 042
     Dates: start: 20081013, end: 20081019
  5. BLINDED ANIDULAFUNGIN [Suspect]
     Indication: SYSTEMIC CANDIDA
     Dosage: 100 MG, 1X/DAY
     Route: 042
     Dates: start: 20081013, end: 20081019
  6. MAGNESIUM SULFATE [Concomitant]
     Route: 042
     Dates: start: 20080921, end: 20081127
  7. POTASSIUM CHLORIDE [Concomitant]
     Route: 042
     Dates: start: 20080921
  8. NEXIUM [Concomitant]
     Route: 048
     Dates: start: 20081013
  9. LORAMET [Concomitant]
     Route: 048
     Dates: start: 20081001
  10. ZOVIRAX [Concomitant]
     Route: 042
     Dates: start: 20081003
  11. CASPOFUNGIN [Concomitant]
     Dosage: UNK
     Route: 042
     Dates: start: 20081020, end: 20081030

REACTIONS (1)
  - ENCEPHALOPATHY [None]
